FAERS Safety Report 9478204 (Version 1)
Quarter: 2013Q3

REPORT INFORMATION
  Report Type: Report from Study
  Country: US (occurrence: US)
  Receive Date: 20130827
  Receipt Date: 20130827
  Transmission Date: 20140515
  Serious: Yes (Other)
  Sender: FDA-Public Use
  Company Number: US-MYLANLABS-2013S1018525

PATIENT
  Age: 32 Year
  Sex: Female

DRUGS (5)
  1. AMNESTEEM CAPSULES [Suspect]
     Dates: start: 20130217, end: 20130713
  2. AMNESTEEM CAPSULES [Suspect]
     Dates: start: 20130217, end: 2013
  3. TOPAMAX [Concomitant]
     Indication: MIGRAINE
  4. CYCLOBENZAPRINE [Concomitant]
  5. GLYCOPYRROLATE [Concomitant]

REACTIONS (1)
  - Maternal exposure before pregnancy [Not Recovered/Not Resolved]
